FAERS Safety Report 5958276-5 (Version None)
Quarter: 2008Q4

REPORT INFORMATION
  Report Type: 
  Country: None (occurrence: None)
  Receive Date: 20081119
  Receipt Date: 20081112
  Transmission Date: 20090506
  Serious: Yes (Other)
  Sender: FDA-Public Use
  Company Number: US-ELI_LILLY_AND_COMPANY-US200811002937

PATIENT
  Sex: Female

DRUGS (3)
  1. HUMALOG [Suspect]
  2. HUMALOG [Suspect]
     Dates: start: 20080501
  3. LANTUS [Concomitant]

REACTIONS (8)
  - BLOOD PRESSURE INCREASED [None]
  - BRAIN NEOPLASM [None]
  - CHEST PAIN [None]
  - CORONARY ARTERY OCCLUSION [None]
  - PALPITATIONS [None]
  - SKIN GRAFT [None]
  - SWELLING [None]
  - VISUAL IMPAIRMENT [None]
